FAERS Safety Report 19186354 (Version 2)
Quarter: 2021Q2

REPORT INFORMATION
  Report Type: Spontaneous
  Country: US (occurrence: US)
  Receive Date: 20210427
  Receipt Date: 20210610
  Transmission Date: 20210717
  Serious: Yes (Hospitalization)
  Sender: FDA-Public Use
  Company Number: US-TAKEDA-2021TUS026635

PATIENT
  Sex: Female
  Weight: 14 kg

DRUGS (4)
  1. GATTEX [Suspect]
     Active Substance: TEDUGLUTIDE\WATER
     Indication: SHORT-BOWEL SYNDROME
     Dosage: 0.4 MILLIGRAM, QD
     Route: 058
     Dates: start: 20210508, end: 20210514
  2. GATTEX [Suspect]
     Active Substance: TEDUGLUTIDE\WATER
     Indication: SHORT-BOWEL SYNDROME
     Dosage: 0.4 MILLIGRAM, QD
     Route: 058
     Dates: start: 20210508, end: 20210514
  3. GATTEX [Suspect]
     Active Substance: TEDUGLUTIDE\WATER
     Indication: SHORT-BOWEL SYNDROME
     Dosage: 0.4 MILLIGRAM, QD
     Route: 058
     Dates: start: 20210508, end: 20210514
  4. GATTEX [Suspect]
     Active Substance: TEDUGLUTIDE\WATER
     Indication: SHORT-BOWEL SYNDROME
     Dosage: 0.4 MILLIGRAM, QD
     Route: 058
     Dates: start: 20210508, end: 20210514

REACTIONS (1)
  - Abdominal distension [Recovered/Resolved]
